FAERS Safety Report 8614192 (Version 5)
Quarter: 2013Q2

REPORT INFORMATION
  Report Type: Report from Study
  Country: US (occurrence: US)
  Receive Date: 20120614
  Receipt Date: 20130422
  Transmission Date: 20140414
  Serious: Yes (Hospitalization, Other)
  Sender: FDA-Public Use
  Company Number: US-BRISTOL-MYERS SQUIBB COMPANY-16662991

PATIENT
  Age: 69 Year
  Sex: Female
  Weight: 59.7 kg

DRUGS (19)
  1. IPILIMUMAB [Suspect]
     Indication: MALIGNANT MELANOMA
     Dosage: LAST ADMINISTERED DATE:04MAY2012.?REMOVED FROM PROTOCOL ON 08JUN12 595 MG
     Route: 042
     Dates: start: 20120504, end: 20120504
  2. AMBIEN [Concomitant]
  3. ASPIRIN [Concomitant]
  4. CALCIUM + VITAMIN D [Concomitant]
  5. FERROUS SULFATE [Concomitant]
  6. LISINOPRIL + HCTZ [Concomitant]
  7. MULTIVITAMIN [Concomitant]
  8. VALTREX [Concomitant]
  9. SENNA [Concomitant]
     Dosage: TAB
  10. PREDNISONE [Concomitant]
  11. OXYCODONE [Concomitant]
  12. MIRALAX [Concomitant]
  13. LORAZEPAM [Concomitant]
  14. GABAPENTIN [Concomitant]
  15. EUCERIN CREAM [Concomitant]
     Dosage: CREAM
  16. CALCIUM CARBONATE [Concomitant]
  17. DOCUSATE SODIUM [Concomitant]
  18. SIMETHICONE [Concomitant]
  19. NEURONTIN [Concomitant]

REACTIONS (5)
  - Lymphopenia [Recovered/Resolved]
  - Rash [Unknown]
  - Hyponatraemia [Recovered/Resolved]
  - Neuropathy peripheral [Not Recovered/Not Resolved]
  - Periorbital oedema [Unknown]
